FAERS Safety Report 5125219-6 (Version None)
Quarter: 2006Q4

REPORT INFORMATION
  Report Type: 
  Country: None (occurrence: None)
  Receive Date: 20061011
  Receipt Date: 20061003
  Transmission Date: 20070319
  Serious: Yes (Hospitalization)
  Sender: FDA-Public Use
  Company Number: US-BRISTOL-MYERS SQUIBB COMPANY-13528377

PATIENT
  Age: 52 Year
  Sex: Female
  Weight: 73 kg

DRUGS (21)
  1. ERBITUX [Suspect]
     Indication: COLON CANCER
     Dates: start: 20060912, end: 20060912
  2. AVASTIN [Suspect]
     Indication: COLON CANCER
     Dosage: ACTUAL DOSE: 300 MG
     Route: 042
     Dates: start: 20060801, end: 20060912
  3. LEUCOVORIN CALCIUM [Suspect]
     Indication: COLON CANCER
     Route: 042
     Dates: start: 20060801, end: 20060912
  4. FLUOROURACIL [Suspect]
     Indication: COLON CANCER
     Dosage: GIVEN AT 300 MG/M2 AND 1800 MG/M2, ACTUAL DOSES GIVEN 522 MG AND 3132 MG)
     Route: 042
     Dates: start: 20060801, end: 20060912
  5. AMPICILLIN SODIUM [Suspect]
     Indication: INFECTION
     Dates: start: 20060914, end: 20060919
  6. COUMADIN [Suspect]
     Indication: DEEP VEIN THROMBOSIS
     Dates: start: 20060901
  7. LEVAQUIN [Suspect]
     Indication: INFECTION
     Dates: start: 20060914, end: 20060919
  8. LORTAB [Suspect]
     Indication: PAIN
     Dosage: DOSE: 5/500
     Dates: start: 20060919, end: 20060919
  9. LOVENOX [Suspect]
     Indication: DEEP VEIN THROMBOSIS
     Dates: start: 20060914
  10. PHENERGAN [Suspect]
     Indication: NAUSEA
     Dates: start: 20060914, end: 20060919
  11. TORADOL [Suspect]
     Indication: PAIN
     Dates: start: 20060914, end: 20060919
  12. VASOTEC [Suspect]
     Indication: HYPERTENSION
     Dates: start: 20060918, end: 20060918
  13. ZOLOFT [Concomitant]
     Indication: DEPRESSION
     Dates: start: 20051201
  14. ACIPHEX [Concomitant]
     Indication: GASTROOESOPHAGEAL REFLUX DISEASE
     Dates: start: 20051201, end: 20060914
  15. AMBIEN [Concomitant]
     Indication: SLEEP DISORDER
     Dates: start: 20060915, end: 20060919
  16. PROTONIX [Concomitant]
     Indication: GASTROOESOPHAGEAL REFLUX DISEASE
     Dates: start: 20060914
  17. CATAPRES [Concomitant]
     Indication: HYPERTENSION
     Dates: start: 20060917, end: 20060918
  18. TYLENOL [Concomitant]
     Indication: HEADACHE
     Dates: start: 20060917
  19. FENTANYL [Concomitant]
     Indication: ANAESTHESIA
     Dates: start: 20060918, end: 20060918
  20. VERSED [Concomitant]
     Indication: ANAESTHESIA
     Dates: start: 20060918, end: 20060918
  21. KEFZOL [Concomitant]
     Indication: ANTIBIOTIC PROPHYLAXIS
     Dates: start: 20060918, end: 20060918

REACTIONS (1)
  - DEEP VEIN THROMBOSIS [None]
